FAERS Safety Report 24788104 (Version 1)
Quarter: 2024Q4

REPORT INFORMATION
  Report Type: Spontaneous
  Country: US (occurrence: None)
  Receive Date: 20241230
  Receipt Date: 20241230
  Transmission Date: 20250115
  Serious: Yes (Other)
  Sender: INFORLIFE
  Company Number: US-INFO-20240389

PATIENT
  Age: 53 Year
  Sex: Male

DRUGS (4)
  1. NICARDIPINE [Suspect]
     Active Substance: NICARDIPINE
     Indication: Blood pressure management
     Dosage: (2MG/H)
     Route: 040
  2. NICARDIPINE [Suspect]
     Active Substance: NICARDIPINE
     Indication: Blood pressure management
     Dosage: (15MG/H)
     Route: 040
  3. ATORVASTATIN [Concomitant]
     Active Substance: ATORVASTATIN
     Indication: Hyperlipidaemia
  4. FUROSEMIDE [Concomitant]
     Active Substance: FUROSEMIDE
     Dosage: IN TOTAL
     Route: 040

REACTIONS (1)
  - Hypoxia [Recovered/Resolved]
